FAERS Safety Report 5912818-4 (Version None)
Quarter: 2008Q4

REPORT INFORMATION
  Report Type: 
  Country: None (occurrence: None)
  Receive Date: 20081006
  Receipt Date: 20080416
  Transmission Date: 20090506
  Serious: Yes (Other)
  Sender: FDA-Public Use
  Company Number: 2008SP007135

PATIENT
  Age: 59 Year
  Sex: Male

DRUGS (3)
  1. INTRON A [Suspect]
     Indication: HEPATITIS C
     Dosage: 6 MIU; IM, 6 MIU; TIW; IM
     Route: 030
     Dates: end: 20020701
  2. INTRON A [Suspect]
     Indication: HEPATITIS C
     Dosage: 6 MIU; IM, 6 MIU; TIW; IM
     Route: 030
     Dates: start: 20020401
  3. REBETOL [Suspect]
     Indication: HEPATITIS C
     Dosage: 800 MG; QD; PO
     Route: 048
     Dates: start: 20020401

REACTIONS (2)
  - RASH [None]
  - RETINOPATHY [None]
